FAERS Safety Report 4662511-3 (Version None)
Quarter: 2005Q2

REPORT INFORMATION
  Report Type: 
  Country: None (occurrence: None)
  Receive Date: 20050513
  Receipt Date: 20050513
  Transmission Date: 20051028
  Serious: Yes (Other)
  Sender: FDA-Public Use
  Company Number: None

PATIENT
  Sex: Male
  Weight: 62 kg

DRUGS (1)
  1. CITALOPRIM    40MG [Suspect]
     Indication: ANXIETY
     Dosage: 20MG   QD   ORAL
     Route: 048
     Dates: start: 20041214, end: 20050303

REACTIONS (1)
  - MOOD ALTERED [None]
